FAERS Safety Report 4935123-1 (Version None)
Quarter: 2006Q1

REPORT INFORMATION
  Report Type: 
  Country: None (occurrence: None)
  Receive Date: 20060306
  Receipt Date: 20060306
  Transmission Date: 20060701
  Serious: Yes (Life-Threatening)
  Sender: FDA-Public Use
  Company Number: None

PATIENT
  Age: 68 Year
  Sex: Female
  Weight: 70 kg

DRUGS (1)
  1. ACTOS [Suspect]
     Indication: DIABETES MELLITUS NON-INSULIN-DEPENDENT
     Dosage: 1 TAB  DAIL   PO
     Route: 048
     Dates: start: 20051126, end: 20060228

REACTIONS (4)
  - LOCAL SWELLING [None]
  - LOSS OF CONSCIOUSNESS [None]
  - OBSTRUCTIVE AIRWAYS DISORDER [None]
  - SWELLING FACE [None]
